FAERS Safety Report 16154417 (Version 1)
Quarter: 2019Q2

REPORT INFORMATION
  Report Type: Spontaneous
  Country: US (occurrence: US)
  Receive Date: 20190403
  Receipt Date: 20190403
  Transmission Date: 20190711
  Serious: Yes (Life-Threatening)
  Sender: FDA-Public Use
  Company Number: US-PFIZER INC-2019135790

PATIENT
  Age: 8 Year
  Sex: Female

DRUGS (6)
  1. CLOBETASOL [Suspect]
     Active Substance: CLOBETASOL
     Indication: EOSINOPHILIC GRANULOMATOSIS WITH POLYANGIITIS
     Dosage: UNK, 2X/DAY
     Route: 061
  2. PREDNISONE. [Suspect]
     Active Substance: PREDNISONE
     Indication: EOSINOPHILIC GRANULOMATOSIS WITH POLYANGIITIS
     Dosage: 30 MG, DAILY (INSTRUCTED TO CONTINUE THE PREDNISONE FOR 3 MONTHS)
  3. METHOTREXATE SODIUM. [Suspect]
     Active Substance: METHOTREXATE SODIUM
     Dosage: 30 MG, WEEKLY (HIGHER DOSE)
  4. LIDOCAINE HCL [Suspect]
     Active Substance: LIDOCAINE HYDROCHLORIDE
     Indication: EOSINOPHILIC GRANULOMATOSIS WITH POLYANGIITIS
     Dosage: 10 MG/ML, UNK (INJECTION)
  5. METHOTREXATE SODIUM. [Suspect]
     Active Substance: METHOTREXATE SODIUM
     Indication: EOSINOPHILIC GRANULOMATOSIS WITH POLYANGIITIS
     Dosage: 25 MG, WEEKLY (HIGHER DOSE)
     Route: 058
  6. TRIAMCINOLONE ACETONIDE. [Suspect]
     Active Substance: TRIAMCINOLONE ACETONIDE
     Indication: EOSINOPHILIC GRANULOMATOSIS WITH POLYANGIITIS
     Dosage: 40 MG/ML, UNK (INJECTION) 2 CC

REACTIONS (1)
  - Drug ineffective [Recovering/Resolving]
